FAERS Safety Report 9896180 (Version 1)
Quarter: 2014Q1

REPORT INFORMATION
  Report Type: Spontaneous
  Country: US (occurrence: US)
  Receive Date: 20140213
  Receipt Date: 20140213
  Transmission Date: 20141002
  Serious: No
  Sender: FDA-Public Use
  Company Number: US-BRISTOL-MYERS SQUIBB COMPANY-17322801

PATIENT
  Age: 51 Year
  Sex: Female
  Weight: 65.76 kg

DRUGS (3)
  1. ORENCIA [Suspect]
     Indication: RHEUMATOID ARTHRITIS
     Dosage: 1 INF
     Route: 042
     Dates: start: 20130121
  2. PLAQUENIL [Concomitant]
  3. PREDNISONE [Concomitant]

REACTIONS (3)
  - Nausea [Unknown]
  - Abdominal distension [Unknown]
  - Vomiting [Unknown]
